FAERS Safety Report 7804443-5 (Version None)
Quarter: 2011Q4

REPORT INFORMATION
  Report Type: 
  Country: None (occurrence: None)
  Receive Date: 20111010
  Receipt Date: 20110930
  Transmission Date: 20120403
  Serious: Yes (Hospitalization, Other)
  Sender: FDA-Public Use
  Company Number: US-BAYER-201038654NA

PATIENT
  Age: 27 Year
  Sex: Female
  Weight: 59.864 kg

DRUGS (1)
  1. MIRENA [Suspect]
     Indication: CONTRACEPTION
     Dosage: FREQUENCY CONTINUOUS
     Route: 015
     Dates: start: 20100319

REACTIONS (3)
  - AMNIOTIC CAVITY INFECTION [None]
  - ABORTION INFECTED [None]
  - PREGNANCY WITH CONTRACEPTIVE DEVICE [None]
